FAERS Safety Report 10281951 (Version 2)
Quarter: 2014Q3

REPORT INFORMATION
  Report Type: Spontaneous
  Country: US (occurrence: US)
  Receive Date: 20140707
  Receipt Date: 20140721
  Transmission Date: 20150326
  Serious: Yes (Other)
  Sender: FDA-Public Use
  Company Number: US-PFIZER INC-2014182991

PATIENT
  Age: 52 Year
  Sex: Female

DRUGS (7)
  1. PRISTIQ EXTENDED RELEASE [Suspect]
     Active Substance: DESVENLAFAXINE SUCCINATE
     Dosage: 50 MG, DAILY
  2. VITAMIN D [Concomitant]
     Active Substance: CHOLECALCIFEROL
     Dosage: UNK
  3. PRILOSEC [Concomitant]
     Active Substance: OMEPRAZOLE MAGNESIUM
     Dosage: UNK
  4. LISINOPRIL. [Concomitant]
     Active Substance: LISINOPRIL
     Dosage: UNK
  5. HYDROCODONE [Concomitant]
     Active Substance: HYDROCODONE
     Dosage: UNK
  6. FLONASE [Concomitant]
     Active Substance: FLUTICASONE PROPIONATE
     Dosage: UNK
  7. VALIUM [Concomitant]
     Active Substance: DIAZEPAM
     Dosage: UNK

REACTIONS (9)
  - Back injury [Unknown]
  - Depressed mood [Unknown]
  - Fall [Unknown]
  - Impaired work ability [Unknown]
  - Spinal cord oedema [Unknown]
  - Spinal cord compression [Unknown]
  - Hypoaesthesia [Unknown]
  - Gait disturbance [Unknown]
  - Pain [Unknown]
